FAERS Safety Report 22830991 (Version 9)
Quarter: 2025Q4

REPORT INFORMATION
  Report Type: Report from Study
  Country: US (occurrence: None)
  Receive Date: 20230817
  Receipt Date: 20251218
  Transmission Date: 20260118
  Serious: Yes (Other)
  Sender: UCB
  Company Number: US-UCBSA-2023040793

PATIENT
  Age: 7 Year
  Weight: 22 kg

DRUGS (4)
  1. FENFLURAMINE [Suspect]
     Active Substance: FENFLURAMINE
     Indication: Severe myoclonic epilepsy of infancy
     Dosage: 1.6 ML ORALLY EVERY MORNING AND 1.8 ML EVERY NIGHT (7.48 MILLIGRAM/DAY)
     Route: 061
  2. FENFLURAMINE [Suspect]
     Active Substance: FENFLURAMINE
     Dosage: 1.6 ML BY MOUTH EVERY MORNING AND 1.8 ML EVERY NIGHT
     Route: 061
  3. FENFLURAMINE [Suspect]
     Active Substance: FENFLURAMINE
     Dosage: 6 ML (3.52 MG) BY MOUTH EVERY MORNING AND 1.8 ML (3.96 MG) EVERY EVENING.
  4. FENFLURAMINE [Suspect]
     Active Substance: FENFLURAMINE
     Dosage: 11.9 MILLIGRAM PER DAY

REACTIONS (4)
  - Aortic valve incompetence [Not Recovered/Not Resolved]
  - Aortic dilatation [Not Recovered/Not Resolved]
  - Dilatation ventricular [Unknown]
  - Off label use [Unknown]
